FAERS Safety Report 25510739 (Version 2)
Quarter: 2025Q4

REPORT INFORMATION
  Report Type: Spontaneous
  Country: US (occurrence: US)
  Receive Date: 20250703
  Receipt Date: 20251210
  Transmission Date: 20260118
  Serious: No
  Sender: RADIUS PHARM
  Company Number: US-RADIUS HEALTH INC.-2024US006151

PATIENT
  Age: 75 Year
  Sex: Female

DRUGS (6)
  1. TYMLOS [Suspect]
     Active Substance: ABALOPARATIDE
     Indication: Senile osteoporosis
     Dosage: 80 MICROGRAM, QD
     Route: 058
     Dates: start: 20240602, end: 20240701
  2. TYMLOS [Suspect]
     Active Substance: ABALOPARATIDE
     Indication: Foot fracture
     Dosage: 80 MICROGRAM, QD
     Route: 058
     Dates: start: 20240702
  3. TYMLOS [Suspect]
     Active Substance: ABALOPARATIDE
     Indication: Ankle fracture
     Dosage: 80 MICROGRAM, ONCE DAILY
     Route: 058
  4. HUMIRA [Concomitant]
     Active Substance: ADALIMUMAB
     Indication: Product used for unknown indication
     Dosage: UNK
  5. LEVOTHYROXINE [Concomitant]
     Active Substance: LEVOTHYROXINE
     Indication: Product used for unknown indication
  6. METHOTREXATE [Concomitant]
     Active Substance: METHOTREXATE
     Indication: Product used for unknown indication

REACTIONS (6)
  - Migraine [Recovering/Resolving]
  - Neck pain [Recovering/Resolving]
  - Coccydynia [Recovering/Resolving]
  - Device issue [Unknown]
  - Device use issue [Unknown]
  - Incorrect dose administered by device [Unknown]

NARRATIVE: CASE EVENT DATE: 20240602
